FAERS Safety Report 12542475 (Version 1)
Quarter: 2016Q3

REPORT INFORMATION
  Report Type: Spontaneous
  Country: FR (occurrence: FR)
  Receive Date: 20160709
  Receipt Date: 20160709
  Transmission Date: 20161109
  Serious: Yes (Death, Other)
  Sender: FDA-Public Use
  Company Number: FR-CIPLA LTD.-2014FR00311

PATIENT

DRUGS (7)
  1. GEMCITABINE [Suspect]
     Active Substance: GEMCITABINE\GEMCITABINE HYDROCHLORIDE
     Indication: PANCREATIC CARCINOMA METASTATIC
     Dosage: UNK
     Route: 065
  2. ATROPINE. [Concomitant]
     Active Substance: ATROPINE
     Indication: CHOLANGIOCARCINOMA
     Dosage: 0.25 MG, UNK
     Route: 058
  3. OXALIPLATIN. [Suspect]
     Active Substance: OXALIPLATIN
     Indication: PANCREATIC CARCINOMA METASTATIC
     Dosage: 85 MG/M2, ON DAY 1 TWICE WEEKLY
     Route: 042
  4. IRINOTECAN [Suspect]
     Active Substance: IRINOTECAN
     Indication: PANCREATIC CARCINOMA METASTATIC
     Dosage: 180 MG/M2, ON DAY 1 TWICE WEEKLY
     Route: 042
  5. LEUCOVORIN. [Suspect]
     Active Substance: LEUCOVORIN
     Indication: PANCREATIC CARCINOMA METASTATIC
     Dosage: 400 MG/M2, ON DAY 1 TWICE WEEKLY
     Route: 042
  6. FLUOROURACIL. [Suspect]
     Active Substance: FLUOROURACIL
     Dosage: 2400 MG/M2, 46 HOURS CONTINUOUS INFUSION
     Route: 042
  7. FLUOROURACIL. [Suspect]
     Active Substance: FLUOROURACIL
     Indication: PANCREATIC CARCINOMA METASTATIC
     Dosage: 400 MG/M2, AS BOLUS
     Route: 042

REACTIONS (3)
  - Septic shock [Fatal]
  - Disease progression [Unknown]
  - Febrile neutropenia [Fatal]
